FAERS Safety Report 9030291 (Version 1)
Quarter: 2013Q1

REPORT INFORMATION
  Report Type: Spontaneous
  Country: FR (occurrence: FR)
  Receive Date: 20130122
  Receipt Date: 20130122
  Transmission Date: 20140127
  Serious: Yes (Other)
  Sender: FDA-Public Use
  Company Number: PHHY2013FR004786

PATIENT
  Age: 17 Year
  Sex: 0

DRUGS (7)
  1. OMEPRAZOLE [Suspect]
     Indication: GASTROOESOPHAGEAL REFLUX DISEASE
  2. TACROLIMUS [Suspect]
     Indication: IMMUNOSUPPRESSION
     Dosage: 9 MG, BID
  3. TACROLIMUS [Suspect]
     Dosage: 7 MG, UNK
  4. MYCOPHENOLATE MOFETIL [Concomitant]
     Indication: IMMUNOSUPPRESSION
  5. METHYLPREDNISOLONE [Concomitant]
     Indication: IMMUNOSUPPRESSION
  6. VALGANCICLOVIR [Concomitant]
     Indication: PROPHYLAXIS
  7. BASILIXIMAB [Concomitant]
     Indication: IMMUNOSUPPRESSION

REACTIONS (3)
  - Nephropathy toxic [Recovered/Resolved]
  - Proteinuria [Recovered/Resolved]
  - Drug interaction [Recovered/Resolved]
